FAERS Safety Report 12375175 (Version 1)
Quarter: 2016Q2

REPORT INFORMATION
  Report Type: Spontaneous
  Country: US (occurrence: None)
  Receive Date: 20160516
  Receipt Date: 20160516
  Transmission Date: 20160815
  Serious: Yes (Life-Threatening)
  Sender: FDA-Public Use
  Company Number: None

PATIENT
  Age: 74 Year
  Sex: Male
  Weight: 83.92 kg

DRUGS (3)
  1. NEURONTIN [Suspect]
     Active Substance: GABAPENTIN
     Indication: CENTRAL PAIN SYNDROME
     Route: 048
  2. METROPOL [Concomitant]
  3. OXYGEN. [Concomitant]
     Active Substance: OXYGEN

REACTIONS (10)
  - Somnolence [None]
  - Choking [None]
  - Eye disorder [None]
  - Dysphagia [None]
  - Cough [None]
  - Local swelling [None]
  - Dizziness [None]
  - Upper respiratory tract irritation [None]
  - Eating disorder [None]
  - Abasia [None]

NARRATIVE: CASE EVENT DATE: 20160411
